FAERS Safety Report 13706391 (Version 3)
Quarter: 2017Q3

REPORT INFORMATION
  Report Type: Spontaneous
  Country: CN (occurrence: CN)
  Receive Date: 20170630
  Receipt Date: 20170809
  Transmission Date: 20171127
  Serious: Yes (Hospitalization)
  Sender: FDA-Public Use
  Company Number: CN-GLAXOSMITHKLINE-CN2017GSK099088

PATIENT
  Age: 58 Year
  Sex: Female
  Weight: 57.5 kg

DRUGS (2)
  1. TAMOXIFEN [Suspect]
     Active Substance: TAMOXIFEN
     Indication: BREAST CANCER
     Dosage: UNK
     Route: 048
  2. SERETIDE [Suspect]
     Active Substance: FLUTICASONE PROPIONATE\SALMETEROL XINAFOATE
     Indication: ASTHMA
     Dosage: 1 PUFF(S), BID
     Route: 055
     Dates: end: 20170626

REACTIONS (2)
  - Peripheral swelling [Recovered/Resolved]
  - Gingival swelling [Recovered/Resolved]
